FAERS Safety Report 23981878 (Version 1)
Quarter: 2024Q2

REPORT INFORMATION
  Report Type: Spontaneous
  Country: IT (occurrence: IT)
  Receive Date: 20240617
  Receipt Date: 20240617
  Transmission Date: 20240715
  Serious: Yes (Hospitalization)
  Sender: FDA-Public Use
  Company Number: None

PATIENT
  Age: 62 Year
  Sex: Male
  Weight: 107 kg

DRUGS (12)
  1. FLUOROURACIL [Suspect]
     Active Substance: FLUOROURACIL
     Indication: Pancreatic carcinoma metastatic
     Dosage: 4800 MG CONTINUOUS INTRAVENOUS INFUSION OVER 46 HOURS WITH ELASTOMER IN 0.9% PHYSIOLOGICAL SOLUTI...
     Route: 042
     Dates: start: 20240514, end: 20240516
  2. AKYNZEO [Concomitant]
     Indication: Product used for unknown indication
     Dosage: 1 TABLET
     Route: 048
     Dates: start: 20240514
  3. DEXAMETHASONE [Concomitant]
     Active Substance: DEXAMETHASONE
     Indication: Product used for unknown indication
     Dosage: 16 MG INFUSION 15 MINUTES
     Route: 042
     Dates: start: 20240514
  4. ATROPINE [Concomitant]
     Active Substance: ATROPINE\ATROPINE SULFATE
     Indication: Product used for unknown indication
     Dosage: 1/2 AMPOULE BEFORE ADMINISTRATION OF IRINOTECAN
     Route: 058
     Dates: start: 20240514
  5. PAROXETINE HYDROCHLORIDE [Concomitant]
     Active Substance: PAROXETINE HYDROCHLORIDE\PAROXETINE HYDROCHLORIDE ANHYDROUS
     Indication: Product used for unknown indication
     Route: 048
  6. LANSOPRAZOLE [Concomitant]
     Active Substance: LANSOPRAZOLE
     Indication: Product used for unknown indication
     Dosage: 30MG/DAY
     Route: 048
     Dates: start: 20240515
  7. XANAX [Concomitant]
     Active Substance: ALPRAZOLAM
     Indication: Product used for unknown indication
     Route: 048
  8. TRIMETON [Concomitant]
     Active Substance: CHLORPHENIRAMINE MALEATE
     Indication: Product used for unknown indication
     Route: 065
     Dates: start: 20240514
  9. LEVOLEUCOVORIN [Suspect]
     Active Substance: LEVOLEUCOVORIN
     Indication: Product used for unknown indication
     Dosage: 330 MG INFUSION 120 MINUTES, CALCIUM LEVOFOLINATE
     Route: 042
     Dates: start: 20240514
  10. OXALIPLATIN [Suspect]
     Active Substance: OXALIPLATIN
     Indication: Pancreatic carcinoma metastatic
     Dosage: 170 MG: FIRST INFUSION IN 5% GLUCOSE SOLUTION, INFUSION DURATION 180 MINUTES
     Route: 042
     Dates: start: 20240514
  11. DEXAMETHASONE SODIUM PHOSPHATE [Concomitant]
     Active Substance: DEXAMETHASONE PHOSPHATE\DEXAMETHASONE SODIUM PHOSPHATE
     Indication: Product used for unknown indication
     Dosage: 2 MG/DAY FOR TWO DAYS?1MG/DAY FOR A FURTHER TWO DAYS
     Route: 048
     Dates: start: 20240515, end: 20240518
  12. IRINOTECAN HYDROCHLORIDE [Suspect]
     Active Substance: IRINOTECAN HYDROCHLORIDE
     Indication: Pancreatic carcinoma metastatic
     Dosage: 270 MG FIRST INFUSION IN 0.9% SALINE SOLUTION, INFUSION DURATION 60 MINUTES
     Route: 042
     Dates: start: 20240514

REACTIONS (3)
  - Vomiting [Recovered/Resolved]
  - Diarrhoea [Recovered/Resolved]
  - Asthenia [Recovering/Resolving]

NARRATIVE: CASE EVENT DATE: 20240521
